FAERS Safety Report 15264659 (Version 1)
Quarter: 2018Q3

REPORT INFORMATION
  Report Type: Report from Study
  Country: BR (occurrence: BR)
  Receive Date: 20180810
  Receipt Date: 20180810
  Transmission Date: 20181010
  Serious: Yes (Other)
  Sender: FDA-Public Use
  Company Number: PHHY2018BR068122

PATIENT
  Sex: Female

DRUGS (2)
  1. DIOVAN AMLO FIX [Suspect]
     Active Substance: AMLODIPINE\VALSARTAN
     Indication: BLOOD CHOLESTEROL ABNORMAL
  2. DIOVAN AMLO FIX [Suspect]
     Active Substance: AMLODIPINE\VALSARTAN
     Indication: THYROID DISORDER
     Dosage: (AMLODIPINE 5 MG, VALSARTAN 320 MG), UNK
     Route: 065

REACTIONS (2)
  - Product use in unapproved indication [Unknown]
  - Diabetes mellitus [Unknown]
